FAERS Safety Report 7073094-5 (Version None)
Quarter: 2010Q4

REPORT INFORMATION
  Report Type: 
  Country: None (occurrence: None)
  Receive Date: 20101029
  Receipt Date: 20100423
  Transmission Date: 20110411
  Serious: No
  Sender: FDA-Public Use
  Company Number: A0856487A

PATIENT
  Age: 73 Year
  Sex: Female

DRUGS (13)
  1. ADVAIR DISKUS 100/50 [Suspect]
     Indication: CHRONIC OBSTRUCTIVE PULMONARY DISEASE
     Dosage: 1PUFF TWICE PER DAY
     Route: 055
     Dates: start: 20100322
  2. BACLOFEN [Concomitant]
  3. LEXAPRO [Concomitant]
  4. ATIVAN [Concomitant]
  5. AMBIEN [Concomitant]
  6. LIPITOR [Concomitant]
  7. HYZAAR [Concomitant]
  8. CLARITIN [Concomitant]
  9. AMLODIPINE [Concomitant]
  10. PRILOSEC [Concomitant]
  11. LAXATIVE [Concomitant]
  12. VITAMIN TAB [Concomitant]
  13. DARVOCET [Concomitant]

REACTIONS (3)
  - ARTHRALGIA [None]
  - BACK PAIN [None]
  - PAIN IN EXTREMITY [None]
